FAERS Safety Report 6944614-3 (Version None)
Quarter: 2010Q3

REPORT INFORMATION
  Report Type: 
  Country: None (occurrence: None)
  Receive Date: 20100825
  Receipt Date: 20100825
  Transmission Date: 20110219
  Serious: No
  Sender: FDA-Public Use
  Company Number: None

PATIENT
  Age: 42 Year
  Sex: Male
  Weight: 82.6 kg

DRUGS (1)
  1. CYCLOBENZAPRINE [Suspect]
     Indication: MUSCLE SPASMS
     Dosage: 10 MG TID PO
     Route: 048
     Dates: start: 20091110, end: 20091214

REACTIONS (1)
  - NEUTROPENIA [None]
